FAERS Safety Report 6562514-8 (Version None)
Quarter: 2010Q1

REPORT INFORMATION
  Report Type: 
  Country: None (occurrence: None)
  Receive Date: 20100130
  Receipt Date: 20091203
  Transmission Date: 20100710
  Serious: No
  Sender: FDA-Public Use
  Company Number: US-ABBOTT-09P-163-0607616-00

PATIENT
  Sex: Female
  Weight: 78.088 kg

DRUGS (1)
  1. HUMIRA [Suspect]
     Indication: RHEUMATOID ARTHRITIS
     Route: 058
     Dates: start: 20051101, end: 20090801

REACTIONS (5)
  - COUGH [None]
  - NASOPHARYNGITIS [None]
  - SCAB [None]
  - SINUSITIS [None]
  - UPPER RESPIRATORY TRACT INFECTION [None]
